FAERS Safety Report 6831122-3 (Version None)
Quarter: 2010Q3

REPORT INFORMATION
  Report Type: 
  Country: None (occurrence: None)
  Receive Date: 20100709
  Receipt Date: 20100709
  Transmission Date: 20110219
  Serious: Yes (Life-Threatening, Hospitalization)
  Sender: FDA-Public Use
  Company Number: None

PATIENT
  Sex: Female
  Weight: 77.5651 kg

DRUGS (2)
  1. UNASYN [Suspect]
     Indication: ABDOMINAL ABSCESS
     Dosage: 3 GRAMS Q6H IV
     Route: 042
     Dates: start: 20100612, end: 20100618
  2. VANCOMYCIN [Suspect]
     Indication: CELLULITIS
     Dosage: 750 MG Q12H IV
     Route: 042
     Dates: start: 20100617, end: 20100620

REACTIONS (4)
  - LEUKOCYTOSIS [None]
  - RASH ERYTHEMATOUS [None]
  - SKIN EXFOLIATION [None]
  - VASCULITIS [None]
